FAERS Safety Report 7674961-1 (Version None)
Quarter: 2011Q3

REPORT INFORMATION
  Report Type: 
  Country: None (occurrence: None)
  Receive Date: 20110810
  Receipt Date: 20110808
  Transmission Date: 20111222
  Serious: Yes (Life-Threatening, Hospitalization, Other)
  Sender: FDA-Public Use
  Company Number: US-CEPHALON-US019477

PATIENT
  Sex: Male
  Weight: 114 kg

DRUGS (6)
  1. GABAPENTIN [Concomitant]
     Indication: NEUROPATHY PERIPHERAL
     Route: 048
     Dates: start: 20000101
  2. PROVIGIL [Suspect]
     Indication: NARCOLEPSY
     Route: 048
     Dates: start: 20061001, end: 20061101
  3. DEXEDRINE [Suspect]
     Indication: ATTENTION DEFICIT/HYPERACTIVITY DISORDER
     Route: 048
     Dates: start: 19920101
  4. GABAPENTIN [Concomitant]
     Indication: PELVIC PAIN
  5. PROVIGIL [Suspect]
     Route: 048
     Dates: start: 20061101, end: 20070101
  6. CYMBALTA [Concomitant]
     Route: 048

REACTIONS (6)
  - DELUSION [None]
  - EOSINOPHILIA [None]
  - MYOCARDIAL INFARCTION [None]
  - RENAL FAILURE ACUTE [None]
  - CARDIOGENIC SHOCK [None]
  - DRUG RASH WITH EOSINOPHILIA AND SYSTEMIC SYMPTOMS [None]
